FAERS Safety Report 5416358-0 (Version None)
Quarter: 2007Q3

REPORT INFORMATION
  Report Type: 
  Country: None (occurrence: None)
  Receive Date: 20070816
  Receipt Date: 20070808
  Transmission Date: 20080115
  Serious: Yes (Hospitalization)
  Sender: FDA-Public Use
  Company Number: PHBS2007NL11619

PATIENT
  Age: 35 Year
  Sex: Male

DRUGS (5)
  1. TRILEPTAL [Suspect]
     Indication: BIPOLAR I DISORDER
     Dosage: 300 MG, BID
     Route: 048
  2. TRILEPTAL [Suspect]
     Dosage: 300 MG/DAY
     Route: 048
  3. CLINDAMYCIN HCL [Suspect]
  4. METFORMIN HCL [Concomitant]
  5. NITRAZEPAM [Concomitant]
     Dosage: UNK, PRN

REACTIONS (6)
  - CELLULITIS [None]
  - DIABETES MELLITUS [None]
  - MALAISE [None]
  - OEDEMA PERIPHERAL [None]
  - PYREXIA [None]
  - RASH PRURITIC [None]
